FAERS Safety Report 11686009 (Version 1)
Quarter: 2015Q4

REPORT INFORMATION
  Report Type: Spontaneous
  Country: US (occurrence: US)
  Receive Date: 20151030
  Receipt Date: 20151030
  Transmission Date: 20160304
  Serious: Yes (Other)
  Sender: FDA-Public Use
  Company Number: US-009507513-1510USA012830

PATIENT
  Sex: Female

DRUGS (21)
  1. PRILOSEC [Concomitant]
     Active Substance: OMEPRAZOLE MAGNESIUM
     Route: 048
  2. ALLOPURINOL. [Concomitant]
     Active Substance: ALLOPURINOL
  3. FOLIC ACID. [Concomitant]
     Active Substance: FOLIC ACID
  4. FLONASE [Concomitant]
     Active Substance: FLUTICASONE PROPIONATE
  5. LYRICA [Concomitant]
     Active Substance: PREGABALIN
  6. ASCORBIC ACID. [Concomitant]
     Active Substance: ASCORBIC ACID
  7. LESCOL XL [Suspect]
     Active Substance: FLUVASTATIN SODIUM
     Dosage: 80 MG, QD
     Route: 048
  8. PLAVIX [Suspect]
     Active Substance: CLOPIDOGREL BISULFATE
     Dosage: 75 MG, QD
     Route: 048
  9. ZETIA [Suspect]
     Active Substance: EZETIMIBE
     Dosage: 10 MG, QD
     Route: 048
  10. SYNTHROID [Concomitant]
     Active Substance: LEVOTHYROXINE SODIUM
     Route: 048
  11. METAMUCIL [Concomitant]
     Active Substance: PLANTAGO SEED
  12. AMLODIPINE BESYLATE (+) BENAZEPRIL HYDROCHLORIDE [Suspect]
     Active Substance: AMLODIPINE BESYLATE\BENAZEPRIL HYDROCHLORIDE
     Dosage: 5 MG, UNKNOWN
     Route: 048
  13. FOSAMAX [Suspect]
     Active Substance: ALENDRONATE SODIUM
     Dosage: 70 MG, QD
     Route: 048
  14. AVAPRO [Suspect]
     Active Substance: IRBESARTAN
  15. IRON (UNSPECIFIED) [Concomitant]
     Active Substance: IRON
  16. ASPIRIN. [Concomitant]
     Active Substance: ASPIRIN
  17. VITAMIN B COMPLEX [Concomitant]
     Active Substance: CYANOCOBALAMIN\DEXPANTHENOL\NIACINAMIDE\PYRIDOXINE HYDROCHLORIDE\RIBOFLAVIN 5^-PHOSPHATE SODIUM\THIAMINE HYDROCHLORIDE\VITAMIN B COMPLEX
  18. POLYETHYLENE GLYCOL 3350. [Suspect]
     Active Substance: POLYETHYLENE GLYCOL 3350
     Indication: PRODUCT USED FOR UNKNOWN INDICATION
     Dosage: 17 G, QD
     Route: 048
  19. TRAMADOL HYDROCHLORIDE. [Suspect]
     Active Substance: TRAMADOL HYDROCHLORIDE
     Dosage: 50 MG, TID
     Route: 048
  20. ZYDONE [Concomitant]
     Active Substance: ACETAMINOPHEN\HYDROCODONE BITARTRATE
  21. PROCRIT [Concomitant]
     Active Substance: ERYTHROPOIETIN

REACTIONS (11)
  - Retching [Unknown]
  - Headache [Unknown]
  - Nausea [Unknown]
  - Dizziness [Unknown]
  - Fatigue [Unknown]
  - Diarrhoea [Unknown]
  - Swollen tongue [Unknown]
  - Dehydration [Unknown]
  - Hiatus hernia [Unknown]
  - Vomiting [Unknown]
  - Asthenia [Unknown]
